FAERS Safety Report 4284522-2 (Version None)
Quarter: 2004Q1

REPORT INFORMATION
  Report Type: 
  Country: None (occurrence: None)
  Receive Date: 20040130
  Receipt Date: 20040108
  Transmission Date: 20041129
  Serious: Yes (Hospitalization, Other)
  Sender: FDA-Public Use
  Company Number: USA040156182

PATIENT
  Age: 58 Year
  Sex: Female

DRUGS (8)
  1. EVISTA [Suspect]
     Indication: OSTEOPOROSIS
     Dates: start: 20000101
  2. LIPITOR [Concomitant]
  3. CARBABMAZEPINE [Concomitant]
  4. THYROID TAB [Concomitant]
  5. DIPHENHYDRAMINE HCL [Concomitant]
  6. FUROSEMIDE [Concomitant]
  7. HEART PILL [Concomitant]
  8. CELEBREX (CELEXOCIB)] [Concomitant]

REACTIONS (3)
  - FALL [None]
  - FOOT FRACTURE [None]
  - LIMB INJURY [None]
